FAERS Safety Report 17755323 (Version 11)
Quarter: 2021Q3

REPORT INFORMATION
  Report Type: Report from Study
  Country: JP (occurrence: JP)
  Receive Date: 20200507
  Receipt Date: 20210826
  Transmission Date: 20211014
  Serious: Yes (Death, Hospitalization)
  Sender: FDA-Public Use
  Company Number: JP-ROCHE-2590137

PATIENT
  Age: 73 Year
  Sex: Female
  Weight: 41.5 kg

DRUGS (14)
  1. PLACEBO [Suspect]
     Active Substance: UNSPECIFIED INGREDIENT
     Indication: SMALL CELL LUNG CANCER
     Route: 042
     Dates: start: 20200408, end: 20200408
  2. SINGULAIR [Concomitant]
     Active Substance: MONTELUKAST SODIUM
     Indication: ASTHMA
     Route: 048
     Dates: start: 20200219, end: 20200421
  3. LOCOID [Concomitant]
     Active Substance: HYDROCORTISONE BUTYRATE
     Indication: SKIN ULCER
     Dosage: DOSAGE: PROPER QUANTITY
     Route: 061
     Dates: start: 20200410, end: 20200421
  4. CARBOPLATIN. [Suspect]
     Active Substance: CARBOPLATIN
     Indication: SMALL CELL LUNG CANCER
     Dosage: AUC 05 MG/ML/MIN
     Route: 041
     Dates: start: 20200408, end: 20200408
  5. TAKECAB [Concomitant]
     Active Substance: VONOPRAZAN FUMARATE
     Indication: GASTRITIS PROPHYLAXIS
     Route: 048
     Dates: start: 20200408, end: 20200421
  6. LOXOPROFEN [Concomitant]
     Active Substance: LOXOPROFEN
     Indication: NERVOUS SYSTEM DISORDER
     Route: 048
     Dates: start: 20200407, end: 20200421
  7. ETOPOSIDE. [Suspect]
     Active Substance: ETOPOSIDE
     Indication: SMALL CELL LUNG CANCER
     Dosage: DOSE OF LAST ETOPOSIDE ADMINISTERED PRIOR TO AE ONSET: 137 MG ON 10/APR/2020
     Route: 041
     Dates: start: 20200408, end: 20200410
  8. AMBROXOL HYDROCHLORIDE [Concomitant]
     Active Substance: AMBROXOL HYDROCHLORIDE
     Indication: ASTHMA
     Route: 048
     Dates: start: 20200219, end: 20200421
  9. MEPTIN AIR [Concomitant]
     Active Substance: PROCATEROL HYDROCHLORIDE
     Indication: ASTHMA
     Dosage: DOSAGE: PROPER QUANTITY AND DOSE INTERVAL: PROPERLY
     Route: 055
     Dates: start: 20200303, end: 20200421
  10. CLARITHROMYCIN. [Concomitant]
     Active Substance: CLARITHROMYCIN
     Indication: PROPHYLAXIS
     Route: 048
     Dates: start: 20200219, end: 20200421
  11. TERRA CORTRIL (JAPAN) [Concomitant]
  12. ATEZOLIZUMAB. [Suspect]
     Active Substance: ATEZOLIZUMAB
     Indication: SMALL CELL LUNG CANCER
     Route: 042
     Dates: start: 20200408, end: 20200408
  13. ACTOSIN [Concomitant]
     Indication: SKIN ULCER
     Dosage: DOSAGE: PROPER QUANTITY?INDICATION RIGHT LOWER LEG SKIN ULCER
     Route: 061
     Dates: start: 20200410, end: 20200421
  14. AMLODIPINE [Concomitant]
     Active Substance: AMLODIPINE BESYLATE
     Indication: HYPERTENSION
     Route: 048
     Dates: start: 20200402, end: 20200421

REACTIONS (2)
  - Febrile neutropenia [Not Recovered/Not Resolved]
  - Septic shock [Fatal]

NARRATIVE: CASE EVENT DATE: 20200420
